FAERS Safety Report 6765447-7 (Version None)
Quarter: 2010Q2

REPORT INFORMATION
  Report Type: 
  Country: None (occurrence: None)
  Receive Date: 20100611
  Receipt Date: 20100603
  Transmission Date: 20101027
  Serious: Yes (Other)
  Sender: FDA-Public Use
  Company Number: US-JNJFOC-20100601392

PATIENT
  Age: 57 Year
  Sex: Male

DRUGS (2)
  1. LOPERAMIDE HYDROCHLORIDE [Suspect]
     Indication: DIARRHOEA
     Route: 065
  2. MESALAMINE [Suspect]
     Indication: DIARRHOEA
     Route: 048

REACTIONS (5)
  - DEHYDRATION [None]
  - DRUG INEFFECTIVE [None]
  - HAEMATOCHEZIA [None]
  - NAUSEA [None]
  - WEIGHT DECREASED [None]
